FAERS Safety Report 26191842 (Version 1)
Quarter: 2025Q4

REPORT INFORMATION
  Report Type: Spontaneous
  Country: US (occurrence: US)
  Receive Date: 20251223
  Receipt Date: 20251223
  Transmission Date: 20260118
  Serious: No
  Sender: CELLTRION
  Company Number: US-CELLTRION INC.-2025US027041

PATIENT

DRUGS (5)
  1. RITUXIMAB [Suspect]
     Active Substance: RITUXIMAB
     Indication: Systemic lupus erythematosus
     Dosage: 10,000 MG EVERY 4 WEEKS
  2. RITUXIMAB [Suspect]
     Active Substance: RITUXIMAB
     Indication: Acute disseminated encephalomyelitis
     Dosage: 1000 MG EVERY FOUR WEEKS (DAY 180)
  3. RITUXIMAB [Suspect]
     Active Substance: RITUXIMAB
     Dosage: 1000 MG EVERY FOUR WEEKS (DAY 360)
  4. PREDNISONE [Concomitant]
     Active Substance: PREDNISONE
     Indication: Acute disseminated encephalomyelitis
     Dosage: 15 MG, DAILY (DAY 180)
  5. PREDNISONE [Concomitant]
     Active Substance: PREDNISONE
     Dosage: 15 MG, DAILY (DAY 360)

REACTIONS (1)
  - Drug effective for unapproved indication [Unknown]
